FAERS Safety Report 8334056 (Version 2)
Quarter: 2013Q2

REPORT INFORMATION
  Report Type: Spontaneous
  Country: US (occurrence: None)
  Receive Date: 20111130
  Receipt Date: 20120531
  Transmission Date: 20140414
  Serious: Yes (Hospitalization, Disabling, Other)
  Sender: FDA-Public Use
  Company Number: US201106004327

PATIENT
  Age: 54 Year
  Sex: Female
  Weight: 99.8 kg

DRUGS (4)
  1. BYETTA [Suspect]
     Dosage: UNK
     Dates: start: 200905, end: 20100509
  2. COZAAR (LOSARTAN POTASSIUM) (50 MILLIGRAM, TABLETS) (LOSARTAN POTASSIUM) [Concomitant]
  3. IBUPROFEN (IBUPROFEN) [Concomitant]
  4. ADVAIR DISKUS (FLUTICASONE PROPIONATE, SALMETEROL XINAFOATE) [Concomitant]

REACTIONS (2)
  - PANCREATITIS [None]
  - RENAL DISORDER [None]
